FAERS Safety Report 6158254-X (Version None)
Quarter: 2009Q2

REPORT INFORMATION
  Report Type: 
  Country: None (occurrence: None)
  Receive Date: 20090414
  Receipt Date: 20090414
  Transmission Date: 20091009
  Serious: Yes (Life-Threatening, Hospitalization, Other)
  Sender: FDA-Public Use
  Company Number: None

PATIENT
  Age: 40 Year
  Sex: Male
  Weight: 99.7913 kg

DRUGS (3)
  1. DEPO-MEDROL [Suspect]
     Indication: EPIDURAL ANAESTHESIA
     Dosage: I DON'T KNOW 7 TIMES IT WAS USE EPIDURAL
     Route: 008
     Dates: start: 20010615, end: 20010815
  2. DEPO-MEDROL [Suspect]
     Indication: SURGERY
     Dosage: I DON'T KNOW 7 TIMES IT WAS USE EPIDURAL
     Route: 008
     Dates: start: 20010615, end: 20010815
  3. . [Concomitant]

REACTIONS (1)
  - DRUG INEFFECTIVE [None]
